FAERS Safety Report 5025034-8 (Version None)
Quarter: 2006Q2

REPORT INFORMATION
  Report Type: 
  Country: None (occurrence: None)
  Receive Date: 20060608
  Receipt Date: 20060608
  Transmission Date: 20061013
  Serious: Yes (Life-Threatening)
  Sender: FDA-Public Use
  Company Number: None

PATIENT
  Age: 51 Year
  Sex: Female
  Weight: 49.4421 kg

DRUGS (6)
  1. KETEK [Suspect]
     Indication: CHRONIC SINUSITIS
     Dosage: 400 MG 2 QD PO
     Route: 048
     Dates: start: 20060301, end: 20060315
  2. SALAGEN [Concomitant]
  3. FOSAMAX [Concomitant]
  4. DIAZEPAM [Concomitant]
  5. TOPROL-XL [Concomitant]
  6. AMBIEN CR [Concomitant]

REACTIONS (7)
  - DRUG HYPERSENSITIVITY [None]
  - HEADACHE [None]
  - HEPATITIS ACUTE [None]
  - NAUSEA [None]
  - PYREXIA [None]
  - RED BLOOD CELL COUNT DECREASED [None]
  - WHITE BLOOD CELL COUNT DECREASED [None]
